FAERS Safety Report 24444576 (Version 2)
Quarter: 2024Q4

REPORT INFORMATION
  Report Type: Report from Study
  Country: US (occurrence: US)
  Receive Date: 20241016
  Receipt Date: 20241017
  Transmission Date: 20250115
  Serious: No
  Sender: ROCHE
  Company Number: US-ROCHE-2840171

PATIENT
  Age: 58 Year
  Sex: Female

DRUGS (6)
  1. RITUXAN [Suspect]
     Active Substance: RITUXIMAB
     Indication: Neuromyelitis optica spectrum disorder
     Dosage: DOSE: 10 MG, THE ANTICIPATED DOSE WAS ON 02/FEB/2024
     Route: 041
  2. RITUXAN [Suspect]
     Active Substance: RITUXIMAB
     Indication: Demyelination
  3. RITUXAN [Suspect]
     Active Substance: RITUXIMAB
     Indication: Myelitis
  4. BENADRYL [Concomitant]
     Active Substance: DIPHENHYDRAMINE HYDROCHLORIDE
     Indication: Premedication
     Dosage: 30 MIN PRIOR TO RITUXAN? FREQUENCY TEXT:PUSH ONCE
     Route: 042
  5. TYLENOL [Concomitant]
     Active Substance: ACETAMINOPHEN
     Indication: Premedication
     Dosage: 30 MIN PRIOR TO RITUXAN
     Route: 048
  6. SOLU-MEDROL [Concomitant]
     Active Substance: METHYLPREDNISOLONE SODIUM SUCCINATE
     Indication: Premedication
     Dosage: 250 MG IV PUSH EVERY 4 HOURS PRN INFUSION REACTION FOR MAX OF 1 GM INCLUDING PREMEDICATION?30 MIN PR
     Route: 042

REACTIONS (3)
  - Off label use [Unknown]
  - No adverse event [Unknown]
  - Product dispensing error [Unknown]
